FAERS Safety Report 5656164-5 (Version None)
Quarter: 2008Q1

REPORT INFORMATION
  Report Type: 
  Country: None (occurrence: None)
  Receive Date: 20080305
  Receipt Date: 20080222
  Transmission Date: 20080703
  Serious: Yes (Hospitalization, Other)
  Sender: FDA-Public Use
  Company Number: 2008020042

PATIENT
  Age: 62 Year
  Sex: Female
  Weight: 90.7194 kg

DRUGS (4)
  1. FELBATOL [Suspect]
     Indication: CONVULSION
     Dosage: (1800 MG AM AND 3 PM AND 2400MG PM), ORAL
     Route: 048
     Dates: start: 19900201
  2. SYNTHROID [Concomitant]
  3. NEURONTIN [Concomitant]
  4. OXYDOCONE [Concomitant]

REACTIONS (7)
  - DIZZINESS POSTURAL [None]
  - DYSARTHRIA [None]
  - FALL [None]
  - INAPPROPRIATE SCHEDULE OF DRUG ADMINISTRATION [None]
  - INCORRECT DOSE ADMINISTERED [None]
  - TRANSIENT ISCHAEMIC ATTACK [None]
  - WRIST FRACTURE [None]
